FAERS Safety Report 4691398-8 (Version None)
Quarter: 2005Q2

REPORT INFORMATION
  Report Type: 
  Country: None (occurrence: None)
  Receive Date: 20050615
  Receipt Date: 20050523
  Transmission Date: 20051028
  Serious: Yes (Death)
  Sender: FDA-Public Use
  Company Number: MK200505-0288-1

PATIENT
  Age: 83 Year
  Sex: Female

DRUGS (2)
  1. MORPHINE SULFATE OS CONCENTRATE 20MG/ML, 240ML [Suspect]
     Indication: PAIN
     Dosage: 5-10 MG, Q 3-4H, PO
     Route: 048
     Dates: start: 20050313, end: 20050517
  2. ATIVAN [Concomitant]

REACTIONS (1)
  - PHARMACEUTICAL PRODUCT COMPLAINT [None]
